FAERS Safety Report 22307157 (Version 1)
Quarter: 2023Q2

REPORT INFORMATION
  Report Type: Spontaneous
  Country: US (occurrence: None)
  Receive Date: 20230511
  Receipt Date: 20230511
  Transmission Date: 20230722
  Serious: No
  Sender: FDA-Public Use
  Company Number: 2023A106809

PATIENT
  Sex: Female

DRUGS (1)
  1. LYNPARZA [Suspect]
     Active Substance: OLAPARIB
     Dosage: 300.0MG UNKNOWN
     Route: 048

REACTIONS (2)
  - Blood creatine increased [Not Recovered/Not Resolved]
  - Underdose [Unknown]
